FAERS Safety Report 25998758 (Version 1)
Quarter: 2025Q4

REPORT INFORMATION
  Report Type: Spontaneous
  Country: US (occurrence: US)
  Receive Date: 20251105
  Receipt Date: 20251105
  Transmission Date: 20260118
  Serious: Yes (Hospitalization)
  Sender: APOTEX
  Company Number: US-APOTEX-2025AP031758

PATIENT
  Age: 34 Year
  Sex: Female

DRUGS (4)
  1. TIZANIDINE [Suspect]
     Active Substance: TIZANIDINE
     Indication: Product used for unknown indication
     Dosage: 80 MILLIGRAM, QD
     Route: 045
  2. TIZANIDINE [Suspect]
     Active Substance: TIZANIDINE
     Dosage: 12 MILLIGRAM
     Route: 048
  3. TIZANIDINE [Suspect]
     Active Substance: TIZANIDINE
     Dosage: 32 MILLIGRAM
     Route: 048
  4. TIZANIDINE [Suspect]
     Active Substance: TIZANIDINE
     Dosage: UNK, PRN
     Route: 048

REACTIONS (8)
  - Agitation [Recovering/Resolving]
  - Discomfort [Recovering/Resolving]
  - Intentional product misuse [Unknown]
  - Incorrect route of product administration [Unknown]
  - Condition aggravated [Recovering/Resolving]
  - Anxiety [Recovering/Resolving]
  - Drug withdrawal syndrome [Recovering/Resolving]
  - Maternal exposure during pregnancy [Unknown]
